FAERS Safety Report 5199832-4 (Version None)
Quarter: 2006Q4

REPORT INFORMATION
  Report Type: 
  Country: None (occurrence: None)
  Receive Date: 20061229
  Receipt Date: 20061220
  Transmission Date: 20070319
  Serious: Yes (Life-Threatening)
  Sender: FDA-Public Use
  Company Number: T200601417

PATIENT
  Age: 66 Year
  Sex: Male
  Weight: 52 kg

DRUGS (5)
  1. OPTIRAY 160 [Suspect]
     Indication: COMPUTERISED TOMOGRAM ABDOMEN
     Dosage: 100 ML, SINGLE, INTRAVENOUS
     Route: 042
     Dates: start: 20061205, end: 20061205
  2. CAMOSTAT MESILATE (CAMOSTAT MESILATE) [Concomitant]
  3. LAFUTIDINE (LAFUTIDINE) [Concomitant]
  4. PAROXETINE HCL [Concomitant]
  5. INSULIN HUMAN (INSULIN HUMAN) [Concomitant]

REACTIONS (4)
  - BRONCHIAL OEDEMA [None]
  - CONTRAST MEDIA REACTION [None]
  - CYANOSIS [None]
  - PALLOR [None]
